FAERS Safety Report 17899200 (Version 1)
Quarter: 2020Q2

REPORT INFORMATION
  Report Type: Spontaneous
  Country: GB (occurrence: GB)
  Receive Date: 20200616
  Receipt Date: 20200616
  Transmission Date: 20200714
  Serious: Yes (Other)
  Sender: FDA-Public Use
  Company Number: GB-TEVA-2020-GB-1247885

PATIENT
  Age: 61 Year
  Sex: Male
  Weight: 80 kg

DRUGS (10)
  1. ZOPICLONE [Concomitant]
     Active Substance: ZOPICLONE
     Dosage: ONE OR TWO TO BE TAKEN AT NIGHT
     Dates: start: 20200124
  2. RIVAROXABAN [Concomitant]
     Active Substance: RIVAROXABAN
     Indication: ANTICOAGULANT THERAPY
     Dosage: TAKE WITH FOOD TO THIN THE BLO...UNIT DOSE: 1 DOSAGE FORMS
     Dates: start: 20200414
  3. TRIMETHOPRIM. [Concomitant]
     Active Substance: TRIMETHOPRIM
     Dosage: TAKE FOR FOR 14 DAYS, TO TREAT ...UNIT DOSE: 2 DOSAGE FORMS
     Dates: start: 20200515
  4. NITROFURANTOIN. [Concomitant]
     Active Substance: NITROFURANTOIN
     Indication: INFECTION
     Dosage: TAKE FOR 7 DAYS, UNIT DOSE: 2 DOSAGE FORMS
     Dates: start: 20200511
  5. FLECAINIDE ACETATE. [Concomitant]
     Active Substance: FLECAINIDE ACETATE
     Dosage: UNIT DOSE: 1 DOSAGE FORMS
     Dates: start: 20200124
  6. EDOXABAN [Concomitant]
     Active Substance: EDOXABAN TOSYLATE
     Indication: ANTICOAGULANT THERAPY
     Dosage: TAKE TO THIN THE BLOOD AND REDUC... UNIT DOSE: 1 DOSAGE FORMS
     Dates: start: 20200318, end: 20200414
  7. AMLODIPINE [Concomitant]
     Active Substance: AMLODIPINE BESYLATE
     Indication: HYPERTENSION
     Dosage: 1 DOSAGE FORMS DAILY; TAKE EVERY MORNING
     Dates: start: 20200124
  8. BISOPROLOL [Concomitant]
     Active Substance: BISOPROLOL
     Dosage: 2 DOSAGE FORMS
     Dates: start: 20200124
  9. OFLOXACIN. [Suspect]
     Active Substance: OFLOXACIN
     Dosage: TAKE FOR 14 DAYS, TO TRE..., UNIT DOSE: 400 MG
     Route: 065
     Dates: start: 20200513
  10. SILDENAFIL. [Concomitant]
     Active Substance: SILDENAFIL
     Dosage: TAKE AS DIRECTED
     Dates: start: 20200124

REACTIONS (1)
  - Rash papular [Recovering/Resolving]

NARRATIVE: CASE EVENT DATE: 20200515
